FAERS Safety Report 16820044 (Version 1)
Quarter: 2019Q3

REPORT INFORMATION
  Report Type: Spontaneous
  Country: US (occurrence: US)
  Receive Date: 20190918
  Receipt Date: 20190918
  Transmission Date: 20191005
  Serious: No
  Sender: FDA-Public Use
  Company Number: US-ASTRAZENECA-2019SF20259

PATIENT
  Age: 13713 Day
  Sex: Female
  Weight: 136.5 kg

DRUGS (2)
  1. BYDUREON BCISE [Suspect]
     Active Substance: EXENATIDE
     Indication: TYPE 2 DIABETES MELLITUS
     Route: 058
  2. LANTUS [Concomitant]
     Active Substance: INSULIN GLARGINE
     Dosage: 65UKAT/L AT NIGHT

REACTIONS (3)
  - Device leakage [Unknown]
  - Blood glucose increased [Unknown]
  - Device dispensing error [Unknown]

NARRATIVE: CASE EVENT DATE: 20190809
